FAERS Safety Report 7610387-4 (Version None)
Quarter: 2011Q3

REPORT INFORMATION
  Report Type: 
  Country: None (occurrence: None)
  Receive Date: 20110715
  Receipt Date: 20110708
  Transmission Date: 20111222
  Serious: No
  Sender: FDA-Public Use
  Company Number: US-PFIZER INC-2011154416

PATIENT
  Sex: Female
  Weight: 56.7 kg

DRUGS (13)
  1. DIOVAN [Concomitant]
     Dosage: UNK
  2. ASPIRIN [Concomitant]
     Dosage: 81 MG, UNK
  3. OXYBUTIN [Concomitant]
     Dosage: UNK
  4. PROMETHAZINE [Concomitant]
     Dosage: UNK
  5. AMLODIPINE [Concomitant]
     Dosage: UNK
  6. LORAZEPAM [Concomitant]
     Dosage: UNK
  7. ENSURE [Concomitant]
     Dosage: UNK
  8. HYDROCODONE [Concomitant]
     Dosage: UNK
  9. CITRACAL [Concomitant]
     Dosage: UNK
  10. PHENOBARBITAL [Concomitant]
     Dosage: UNK
  11. RANITIDINE [Concomitant]
     Dosage: UNK
  12. SUTENT [Suspect]
     Indication: RENAL NEOPLASM
     Dosage: 50 MG, 1X/DAY (ONCE DAILY) 28 DAYS REPEAT OF 6 WEEKS
     Route: 048
  13. BENTYL [Concomitant]
     Dosage: UNK

REACTIONS (3)
  - NAUSEA [None]
  - MOUTH ULCERATION [None]
  - DIARRHOEA [None]
